FAERS Safety Report 10533585 (Version 2)
Quarter: 2014Q4

REPORT INFORMATION
  Report Type: Report from Study
  Country: JP (occurrence: JP)
  Receive Date: 20141022
  Receipt Date: 20141023
  Transmission Date: 20150529
  Serious: Yes (Death)
  Sender: FDA-Public Use
  Company Number: JP-EISAI MEDICAL RESEARCH-EC-2014-001023

PATIENT
  Age: 70 Year
  Sex: Female
  Weight: 42 kg

DRUGS (7)
  1. ARICEPT [Suspect]
     Active Substance: DONEPEZIL HYDROCHLORIDE
     Indication: DEMENTIA ALZHEIMER^S TYPE
     Dates: start: 20141009, end: 20141017
  2. GASCON [Concomitant]
     Active Substance: DIMETHICONE
  3. MECOBALAMIN [Concomitant]
     Active Substance: METHYLCOBALAMIN
  4. NERIPROCT OINTMENT [Concomitant]
  5. LANSOPRAZOLE OD [Concomitant]
     Active Substance: LANSOPRAZOLE
  6. VANARL N [Concomitant]
  7. FERROMIA [Concomitant]
     Active Substance: FERROUS CITRATE

REACTIONS (1)
  - Cardiac tamponade [Fatal]

NARRATIVE: CASE EVENT DATE: 20141017
